FAERS Safety Report 7965953-3 (Version None)
Quarter: 2011Q4

REPORT INFORMATION
  Report Type: 
  Country: None (occurrence: None)
  Receive Date: 20111208
  Receipt Date: 20111206
  Transmission Date: 20120403
  Serious: No
  Sender: FDA-Public Use
  Company Number: US-PFIZER INC-2011298465

PATIENT
  Sex: Female
  Weight: 71.655 kg

DRUGS (2)
  1. LIPITOR [Suspect]
     Dosage: 80 MG, DAILY
     Dates: start: 20110101
  2. LIPITOR [Suspect]
     Indication: BLOOD CHOLESTEROL INCREASED
     Dosage: 40 MG, DAILY
     Dates: start: 20110601, end: 20110101

REACTIONS (4)
  - BLOOD CHOLESTEROL ABNORMAL [None]
  - MYALGIA [None]
  - HIGH DENSITY LIPOPROTEIN ABNORMAL [None]
  - BLOOD CREATINE ABNORMAL [None]
